FAERS Safety Report 9817332 (Version 1)
Quarter: 2014Q1

REPORT INFORMATION
  Report Type: Report from Study
  Country: US (occurrence: US)
  Receive Date: 20140115
  Receipt Date: 20140115
  Transmission Date: 20141002
  Serious: Yes (Other)
  Sender: FDA-Public Use
  Company Number: US-ROCHE-1331640

PATIENT
  Age: 11 Year
  Sex: Male
  Weight: 30.5 kg

DRUGS (5)
  1. NUTROPIN AQ [Suspect]
     Indication: GROWTH HORMONE DEFICIENCY
     Route: 058
     Dates: end: 201305
  2. LEVOTHYROXINE [Concomitant]
     Route: 048
     Dates: start: 200812, end: 201305
  3. ONDANSETRON [Concomitant]
     Dosage: PRN
     Route: 065
  4. RANITIDINE [Concomitant]
     Dosage: PRN
     Route: 065
  5. METOCLOPRAMIDE [Concomitant]
     Dosage: 5MG/2ML AS NEEDED
     Route: 065

REACTIONS (3)
  - Blood thyroid stimulating hormone increased [Unknown]
  - Growth retardation [Unknown]
  - Drug dose omission [Unknown]
